FAERS Safety Report 5837520-9 (Version None)
Quarter: 2008Q3

REPORT INFORMATION
  Report Type: 
  Country: None (occurrence: None)
  Receive Date: 20080807
  Receipt Date: 20080726
  Transmission Date: 20090109
  Serious: Yes (Other)
  Sender: FDA-Public Use
  Company Number: US-PFIZER INC-2008047425

PATIENT
  Sex: Female
  Weight: 90.909 kg

DRUGS (6)
  1. CHANTIX [Suspect]
     Indication: SMOKING CESSATION THERAPY
  2. ATENOLOL [Concomitant]
     Indication: HYPERTENSION
  3. ZESTRIL [Concomitant]
     Indication: HYPERTENSION
  4. DYNACIRC [Concomitant]
     Indication: HYPERTENSION
  5. TOPAMAX [Concomitant]
  6. ASPIRIN [Concomitant]

REACTIONS (7)
  - ASTHENIA [None]
  - DIZZINESS [None]
  - ELECTROENCEPHALOGRAM ABNORMAL [None]
  - MALAISE [None]
  - NAUSEA [None]
  - VERTIGO [None]
  - VOMITING [None]
